FAERS Safety Report 23313882 (Version 2)
Quarter: 2024Q1

REPORT INFORMATION
  Report Type: Spontaneous
  Country: US (occurrence: US)
  Receive Date: 20231219
  Receipt Date: 20240311
  Transmission Date: 20240410
  Serious: No
  Sender: FDA-Public Use
  Company Number: US-SA-SAC20231218000203

PATIENT
  Age: 65 Year
  Sex: Female
  Weight: 71.6 kg

DRUGS (2)
  1. DUPIXENT [Suspect]
     Active Substance: DUPILUMAB
     Indication: Dermatitis atopic
     Dosage: 300 MG, QOW
     Route: 058
     Dates: start: 2019
  2. VITAMINS [Concomitant]
     Active Substance: VITAMINS

REACTIONS (5)
  - COVID-19 [Recovered/Resolved]
  - Oropharyngeal pain [Unknown]
  - Pain [Unknown]
  - Headache [Unknown]
  - Bone density decreased [Unknown]

NARRATIVE: CASE EVENT DATE: 20231209
